FAERS Safety Report 14290627 (Version 1)
Quarter: 2017Q4

REPORT INFORMATION
  Report Type: Spontaneous
  Country: US (occurrence: US)
  Receive Date: 20171215
  Receipt Date: 20171215
  Transmission Date: 20180321
  Serious: Yes (Hospitalization)
  Sender: FDA-Public Use
  Company Number: None

PATIENT
  Age: 56 Year
  Sex: Male

DRUGS (8)
  1. ENBREL [Suspect]
     Active Substance: ETANERCEPT
     Indication: PSORIASIS
     Dosage: ?          OTHER FREQUENCY:WEEKLY;?
     Route: 058
     Dates: start: 20030508
  2. TACROLIMUS. [Concomitant]
     Active Substance: TACROLIMUS
  3. VALGANCICLOV [Concomitant]
  4. MULTI VIT [Concomitant]
  5. PREDNISONE. [Concomitant]
     Active Substance: PREDNISONE
  6. BALSALAZIDE [Concomitant]
     Active Substance: BALSALAZIDE
  7. MYCOPHENOLAT [Concomitant]
     Active Substance: MYCOPHENOLATE MOFETIL
  8. SULFASALAZINE DELAYED-RELEASE [Concomitant]
     Active Substance: SULFASALAZINE

REACTIONS (2)
  - Liver transplant [None]
  - Unevaluable event [None]

NARRATIVE: CASE EVENT DATE: 20171102
